FAERS Safety Report 7462665-X (Version None)
Quarter: 2011Q2

REPORT INFORMATION
  Report Type: 
  Country: None (occurrence: None)
  Receive Date: 20110506
  Receipt Date: 20081001
  Transmission Date: 20111010
  Serious: Yes (Death, Other)
  Sender: FDA-Public Use
  Company Number: US-BAYER-2011-008805

PATIENT
  Age: 70 Year
  Sex: Male
  Weight: 86.168 kg

DRUGS (16)
  1. COZAAR [Concomitant]
  2. ALLOPURINOL [Concomitant]
  3. AMICAR [Concomitant]
  4. CARVEDILOL [Concomitant]
     Dosage: UNK
     Dates: start: 19980101
  5. CHLORPROPAMIDE [Concomitant]
     Dosage: UNK
     Dates: start: 19980101
  6. LOSARTAN [Concomitant]
     Dosage: UNK
     Dates: start: 19980101
  7. BUMETANIDE [Concomitant]
     Dosage: UNK
     Dates: start: 19980101
  8. METOLAZONE [Concomitant]
     Dosage: UNK
     Dates: start: 19980101
  9. TRASYLOL [Suspect]
     Indication: CARDIAC PACEMAKER INSERTION
  10. WARFARIN [Concomitant]
     Dosage: UNK
     Dates: start: 19980101
  11. PROTAMINE SULFATE [Concomitant]
  12. LANOXIN [Concomitant]
     Dosage: UNK
     Dates: start: 19980101
  13. COREG [Concomitant]
  14. TRASYLOL [Suspect]
     Indication: AORTIC VALVE REPLACEMENT
     Dosage: UNK
     Dates: start: 19981021
  15. TRASYLOL [Suspect]
     Indication: CORONARY ARTERY BYPASS
  16. DOPAMINE HCL [Concomitant]

REACTIONS (7)
  - RENAL IMPAIRMENT [None]
  - INJURY [None]
  - DEATH [None]
  - ANXIETY [None]
  - EMOTIONAL DISTRESS [None]
  - STRESS [None]
  - PAIN [None]
